FAERS Safety Report 17370838 (Version 1)
Quarter: 2020Q1

REPORT INFORMATION
  Report Type: Spontaneous
  Country: US (occurrence: US)
  Receive Date: 20200205
  Receipt Date: 20200205
  Transmission Date: 20200409
  Serious: No
  Sender: FDA-Public Use
  Company Number: US-SA-2020SA027673

PATIENT
  Age: 17 Year
  Sex: Male

DRUGS (1)
  1. ADMELOG [Suspect]
     Active Substance: INSULIN LISPRO
     Dosage: 50 IU, SLIDING SCALE DAILY
     Route: 065
     Dates: start: 201906

REACTIONS (1)
  - Blood glucose increased [Unknown]
